FAERS Safety Report 16122062 (Version 24)
Quarter: 2022Q4

REPORT INFORMATION
  Report Type: Spontaneous
  Country: US (occurrence: US)
  Receive Date: 20190327
  Receipt Date: 20221130
  Transmission Date: 20230113
  Serious: Yes (Hospitalization, Other)
  Sender: FDA-Public Use
  Company Number: US-PFIZER INC-2019127333

PATIENT
  Age: 67 Year
  Sex: Female
  Weight: 72.57 kg

DRUGS (9)
  1. XELJANZ [Suspect]
     Active Substance: TOFACITINIB CITRATE
     Indication: Colitis ulcerative
     Dosage: 10 MG, 2X/DAY
     Route: 048
     Dates: start: 20190315, end: 20190315
  2. XELJANZ [Suspect]
     Active Substance: TOFACITINIB CITRATE
     Indication: Colitis
     Dosage: 5 MG, 2X/DAY
     Route: 048
     Dates: start: 20190315, end: 20211102
  3. XELJANZ [Suspect]
     Active Substance: TOFACITINIB CITRATE
     Dosage: 5 MG, 2X/DAY
     Route: 048
     Dates: start: 20190319
  4. XELJANZ [Suspect]
     Active Substance: TOFACITINIB CITRATE
     Dosage: 5 MG, 1X/DAY
     Route: 048
  5. XELJANZ [Suspect]
     Active Substance: TOFACITINIB CITRATE
     Dosage: 5 MG, 2X/DAY
     Route: 048
     Dates: end: 202201
  6. XELJANZ [Suspect]
     Active Substance: TOFACITINIB CITRATE
     Dosage: 5 MG, 2X/DAY
     Route: 048
     Dates: start: 20220621
  7. XELJANZ [Suspect]
     Active Substance: TOFACITINIB CITRATE
     Dosage: 5 MG, 1X/DAY
     Dates: start: 202209
  8. BERBERINE [Concomitant]
     Active Substance: BERBERINE
     Dosage: UNK
     Dates: start: 20200301
  9. NIACIN [Concomitant]
     Active Substance: NIACIN
     Dosage: UNK
     Dates: start: 20200301

REACTIONS (18)
  - Colitis ulcerative [Unknown]
  - Chronic lymphocytic leukaemia [Unknown]
  - Cataract [Unknown]
  - Drug ineffective [Unknown]
  - Intentional product misuse [Unknown]
  - Product dose confusion [Not Recovered/Not Resolved]
  - Serum ferritin increased [Unknown]
  - Lipids increased [Unknown]
  - Blood glucose increased [Unknown]
  - Alopecia [Not Recovered/Not Resolved]
  - Condition aggravated [Not Recovered/Not Resolved]
  - Diarrhoea [Not Recovered/Not Resolved]
  - Musculoskeletal discomfort [Unknown]
  - Dyspnoea [Unknown]
  - Colitis [Unknown]
  - Dysarthria [Unknown]
  - Cardiac disorder [Unknown]
  - Illness [Unknown]

NARRATIVE: CASE EVENT DATE: 20190318
